FAERS Safety Report 9761311 (Version 1)
Quarter: 2013Q3

REPORT INFORMATION
  Report Type: Spontaneous
  Country: CA (occurrence: None)
  Receive Date: 20130729
  Receipt Date: 20130729
  Transmission Date: 20140515
  Serious: Yes (Hospitalization, Other)
  Sender: FDA-Public Use
  Company Number: 2013-0002

PATIENT
  Age: 52 Year
  Sex: Male

DRUGS (8)
  1. SODIUM THIOSULFATE [Suspect]
     Indication: VASCULAR CALCIFICATION
     Route: 042
  2. SODIUM THIOSULFATE [Suspect]
     Indication: AZOTAEMIA
     Route: 042
  3. SODIUM THIOSULFATE [Suspect]
     Indication: PULMONARY CALCIFICATION
     Route: 048
  4. PREDNISONE [Concomitant]
  5. CINACALCET [Concomitant]
  6. LANTHANUM CARBONATE [Concomitant]
  7. SUPPLEMENTAL OXYGEN [Concomitant]
  8. BRONCHODILATORS [Concomitant]

REACTIONS (1)
  - Femur fracture [None]
